FAERS Safety Report 23194414 (Version 1)
Quarter: 2023Q4

REPORT INFORMATION
  Report Type: Spontaneous
  Country: CN (occurrence: CN)
  Receive Date: 20231117
  Receipt Date: 20231117
  Transmission Date: 20240110
  Serious: Yes (Other)
  Sender: FDA-Public Use
  Company Number: None

PATIENT
  Age: 61 Year
  Sex: Female
  Weight: 70 kg

DRUGS (6)
  1. CYCLOPHOSPHAMIDE [Suspect]
     Active Substance: CYCLOPHOSPHAMIDE
     Indication: Breast mass
     Dosage: 1 G, ONE TIME IN ONE DAY, DILUTED WITH 250 ML OF 0.9% SODIUM CHLORIDE USED TEMPORARILY AT 10:52 (AS
     Route: 041
     Dates: start: 20231014, end: 20231014
  2. CYCLOPHOSPHAMIDE [Suspect]
     Active Substance: CYCLOPHOSPHAMIDE
     Indication: Invasive ductal breast carcinoma
  3. SODIUM CHLORIDE [Suspect]
     Active Substance: SODIUM CHLORIDE
     Indication: Medication dilution
     Dosage: 0.9% 250 ML, ONE TIME IN ONE DAY, USED TO DILUTE 1G OF CYCLOPHOSPHAMIDE USED TEMPORARILY AT 10:52
     Route: 041
     Dates: start: 20231014, end: 20231014
  4. DEXTROSE [Suspect]
     Active Substance: DEXTROSE\DEXTROSE MONOHYDRATE
     Indication: Medication dilution
     Dosage: 5% 250ML, ONE TIME IN ONE DAY, USED TO DILUTE 50 MG OF DOXORUBICIN HYDROCHLORIDE LIPOSOME USED TEMPO
     Route: 041
     Dates: start: 20231014, end: 20231014
  5. DOXORUBICIN HYDROCHLORIDE [Suspect]
     Active Substance: DOXORUBICIN HYDROCHLORIDE
     Indication: Breast mass
     Dosage: 50 MG, ONE TIME IN ONE DAY, DILUTED WITH 250 ML OF 5% GLUCOSE USED TEMPORARILY AT 12:56 (AS A PART O
     Route: 041
     Dates: start: 20231014, end: 20231014
  6. DOXORUBICIN HYDROCHLORIDE [Suspect]
     Active Substance: DOXORUBICIN HYDROCHLORIDE
     Indication: Invasive ductal breast carcinoma

REACTIONS (1)
  - White blood cell count decreased [Recovering/Resolving]

NARRATIVE: CASE EVENT DATE: 20231103
